FAERS Safety Report 23550434 (Version 2)
Quarter: 2024Q2

REPORT INFORMATION
  Report Type: Report from Study
  Country: US (occurrence: US)
  Receive Date: 20240221
  Receipt Date: 20240423
  Transmission Date: 20240716
  Serious: Yes (Other)
  Sender: FDA-Public Use
  Company Number: US-BRISTOL-MYERS SQUIBB COMPANY-2024-026994

PATIENT
  Age: 82 Year
  Sex: Male
  Weight: 77.2 kg

DRUGS (1)
  1. REVLIMID [Suspect]
     Active Substance: LENALIDOMIDE
     Indication: Follicular lymphoma
     Dosage: TAKE 1 CAPSULE ONCE DAILY ON DAYS 1 THROUGH 21, EVERY 28 DAYS (TAKE WITH OR WITHOUT FOOD)
     Route: 048
     Dates: start: 202302

REACTIONS (4)
  - Decreased appetite [Not Recovered/Not Resolved]
  - Weight decreased [Unknown]
  - Pneumonia [Recovering/Resolving]
  - Urinary tract infection [Recovering/Resolving]
